FAERS Safety Report 8032387-5 (Version None)
Quarter: 2012Q1

REPORT INFORMATION
  Report Type: 
  Country: None (occurrence: None)
  Receive Date: 20120105
  Receipt Date: 20111221
  Transmission Date: 20120608
  Serious: Yes (Other)
  Sender: FDA-Public Use
  Company Number: 1000026095

PATIENT
  Age: 43 Year
  Sex: Male

DRUGS (2)
  1. ESCITALOPRAM OXALATE [Suspect]
     Indication: ANXIETY DISORDER
     Dosage: 10 MG (10 MG, 1 IN 1 D), ORAL
     Route: 048
     Dates: start: 20111012, end: 20111016
  2. ESCITALOPRAM OXALATE [Suspect]
     Indication: ANXIETY DISORDER
     Dosage: 5 MG (5 MG, 1 IN 1 D), ORAL
     Route: 048
     Dates: start: 20111009, end: 20111011

REACTIONS (5)
  - DRUG INTOLERANCE [None]
  - DIARRHOEA [None]
  - ANXIETY DISORDER [None]
  - CONDITION AGGRAVATED [None]
  - SLEEP DISORDER [None]
